FAERS Safety Report 4927533-3 (Version None)
Quarter: 2006Q1

REPORT INFORMATION
  Report Type: 
  Country: None (occurrence: None)
  Receive Date: 20060228
  Receipt Date: 20051012
  Transmission Date: 20060701
  Serious: Yes (Hospitalization, Other)
  Sender: FDA-Public Use
  Company Number: US-MERCK-0510USA06860

PATIENT
  Age: 59 Year
  Sex: Female
  Weight: 80 kg

DRUGS (16)
  1. VIOXX [Suspect]
     Indication: ARTHRITIS
     Route: 048
     Dates: start: 20010109, end: 20020823
  2. PROZAC [Concomitant]
     Route: 065
  3. LASIX [Concomitant]
     Route: 065
  4. ALDACTONE [Concomitant]
     Route: 065
  5. AGGRENOX [Concomitant]
     Route: 065
  6. MICRO-K [Concomitant]
     Route: 065
  7. PREMARIN [Concomitant]
     Route: 065
  8. REMERON [Concomitant]
     Route: 065
  9. AMBIEN [Concomitant]
     Route: 065
  10. LIBRIUM [Concomitant]
     Route: 065
  11. DURAGESIC-100 [Concomitant]
     Route: 065
     Dates: start: 20020416, end: 20020515
  12. HYDROCODONE BITARTRATE [Concomitant]
     Route: 065
     Dates: start: 20010109, end: 20010118
  13. COUMADIN [Concomitant]
     Indication: DEEP VEIN THROMBOSIS
     Route: 065
     Dates: start: 20020416, end: 20020515
  14. KLOR-CON [Concomitant]
     Route: 065
     Dates: start: 20011222, end: 20020121
  15. METHYLPREDNISOLONE [Concomitant]
     Indication: PAIN
     Route: 065
     Dates: start: 20010210, end: 20010301
  16. ULTRAM [Concomitant]
     Route: 065

REACTIONS (10)
  - ANEURYSM [None]
  - CEREBROVASCULAR ACCIDENT [None]
  - CONVULSION [None]
  - HERNIA [None]
  - INTESTINAL OBSTRUCTION [None]
  - LARGE INTESTINE PERFORATION [None]
  - OSTEOARTHRITIS [None]
  - RENAL DISORDER [None]
  - RENAL IMPAIRMENT [None]
  - WOUND DEHISCENCE [None]
